FAERS Safety Report 7977733-3 (Version None)
Quarter: 2011Q4

REPORT INFORMATION
  Report Type: 
  Country: None (occurrence: None)
  Receive Date: 20111214
  Receipt Date: 20111129
  Transmission Date: 20120403
  Serious: No
  Sender: FDA-Public Use
  Company Number: US-AMGEN-USASP2011063038

PATIENT
  Age: 72 Year
  Sex: Female

DRUGS (2)
  1. OXYGEN [Concomitant]
  2. ENBREL [Suspect]
     Indication: RHEUMATOID ARTHRITIS
     Dosage: 50 MG, QWK
     Dates: start: 20110629

REACTIONS (2)
  - NODULE [None]
  - HEADACHE [None]
